FAERS Safety Report 5310726-3 (Version None)
Quarter: 2007Q2

REPORT INFORMATION
  Report Type: 
  Country: None (occurrence: None)
  Receive Date: 20070428
  Receipt Date: 20070416
  Transmission Date: 20071010
  Serious: Yes (Other)
  Sender: FDA-Public Use
  Company Number: US-PFIZER INC-2007030531

PATIENT

DRUGS (1)
  1. LIPITOR [Suspect]

REACTIONS (4)
  - ASTHENIA [None]
  - ILL-DEFINED DISORDER [None]
  - MUSCLE INJURY [None]
  - MYALGIA [None]
